FAERS Safety Report 17803806 (Version 1)
Quarter: 2020Q2

REPORT INFORMATION
  Report Type: Spontaneous
  Country: FR (occurrence: FR)
  Receive Date: 20200519
  Receipt Date: 20200519
  Transmission Date: 20200714
  Serious: Yes (Hospitalization)
  Sender: FDA-Public Use
  Company Number: FR-MYLANLABS-2020M1048483

PATIENT
  Age: 12 Year
  Sex: Male
  Weight: 44 kg

DRUGS (13)
  1. CYCLOPHOSPHAMIDE. [Suspect]
     Active Substance: CYCLOPHOSPHAMIDE
     Indication: EWING^S SARCOMA
     Dosage: 2 CURES
     Route: 042
     Dates: start: 20200107, end: 20200210
  2. IFOSFAMIDE. [Suspect]
     Active Substance: IFOSFAMIDE
     Indication: PRODUCT USED FOR UNKNOWN INDICATION
     Dosage: 2 CURE
     Route: 042
     Dates: start: 20200121, end: 20200228
  3. OMEPRAZOLE. [Concomitant]
     Active Substance: OMEPRAZOLE
     Dosage: UNK
     Route: 048
  4. ONDANSETRON [Concomitant]
     Active Substance: ONDANSETRON
     Dosage: VOIR COMMENTAIRE
     Route: 048
  5. MESNA EG [Concomitant]
     Active Substance: MESNA
     Dosage: VOIR COMMENTAIRE
     Route: 042
  6. DOXORUBICINE                       /00330901/ [Suspect]
     Active Substance: DOXORUBICIN
     Indication: EWING^S SARCOMA
     Dosage: 2 CURES
     Route: 042
     Dates: start: 20200107, end: 20200210
  7. EMEND [Concomitant]
     Active Substance: APREPITANT
     Dosage: VOIR COMMENTAIRE
     Route: 048
  8. LARGACTIL                          /00011902/ [Concomitant]
     Active Substance: CHLORPROMAZINE HYDROCHLORIDE
     Dosage: VOIR COMMENTAIRE
     Route: 042
  9. EMEND [Concomitant]
     Active Substance: APREPITANT
     Dosage: VOIR COMMENTAIRE
     Route: 048
  10. ETOPOSIDE. [Suspect]
     Active Substance: ETOPOSIDE
     Indication: EWING^S SARCOMA
     Dosage: 2 CURES
     Route: 042
     Dates: start: 20200121, end: 20200228
  11. VINCRISTINE                        /00078802/ [Suspect]
     Active Substance: VINCRISTINE
     Indication: EWING^S SARCOMA
     Dosage: 2 CURES
     Route: 065
     Dates: start: 20200107, end: 20200110
  12. BACTRIM [Concomitant]
     Active Substance: SULFAMETHOXAZOLE\TRIMETHOPRIM
     Dosage: UNK
     Route: 048
  13. GABAPENTINE [Concomitant]
     Active Substance: GABAPENTIN
     Dosage: UNK
     Route: 048

REACTIONS (1)
  - Venoocclusive disease [Recovering/Resolving]

NARRATIVE: CASE EVENT DATE: 20200319
